FAERS Safety Report 9650492 (Version 2)
Quarter: 2014Q2

REPORT INFORMATION
  Report Type: Spontaneous
  Country: US (occurrence: US)
  Receive Date: 20131029
  Receipt Date: 20140423
  Transmission Date: 20141212
  Serious: No
  Sender: FDA-Public Use
  Company Number: US-009507513-1310USA003343

PATIENT
  Sex: Female
  Weight: 56.69 kg

DRUGS (2)
  1. NUVARING [Suspect]
     Dosage: FREQUENCY:3 WEEKS IN/1 WEEK RING FREE
     Route: 067
     Dates: start: 2004
  2. NUVARING [Suspect]
     Dosage: UNK
     Route: 067

REACTIONS (5)
  - Off label use [Unknown]
  - Device breakage [Unknown]
  - No adverse event [Unknown]
  - Device breakage [Unknown]
  - Discomfort [Unknown]
